FAERS Safety Report 24365237 (Version 3)
Quarter: 2024Q4

REPORT INFORMATION
  Report Type: Spontaneous
  Country: JP (occurrence: JP)
  Receive Date: 20240926
  Receipt Date: 20241115
  Transmission Date: 20250114
  Serious: Yes (Death, Hospitalization, Other)
  Sender: BRISTOL-MYERS SQUIBB COMPANY
  Company Number: JP-BRISTOL-MYERS SQUIBB COMPANY-2024-148946

PATIENT
  Age: 8 Decade
  Sex: Female

DRUGS (2)
  1. YERVOY [Suspect]
     Active Substance: IPILIMUMAB
     Indication: Malignant melanoma
     Route: 041
  2. OPDIVO [Suspect]
     Active Substance: NIVOLUMAB
     Indication: Malignant melanoma

REACTIONS (10)
  - Malignant neoplasm progression [Fatal]
  - Monoplegia [Unknown]
  - Oxygen saturation decreased [Unknown]
  - Adrenocortical insufficiency acute [Unknown]
  - Pathological fracture [Unknown]
  - Infection [Unknown]
  - Performance status decreased [Unknown]
  - Gait disturbance [Unknown]
  - Malaise [Unknown]
  - Back pain [Unknown]
